FAERS Safety Report 6512391-6 (Version None)
Quarter: 2009Q4

REPORT INFORMATION
  Report Type: 
  Country: None (occurrence: None)
  Receive Date: 20091222
  Receipt Date: 20091214
  Transmission Date: 20100525
  Serious: Yes (Other)
  Sender: FDA-Public Use
  Company Number: US-ELI_LILLY_AND_COMPANY-US200911006758

PATIENT
  Age: 70 Year
  Sex: Male

DRUGS (6)
  1. CIALIS [Suspect]
     Indication: ERECTILE DYSFUNCTION
     Dosage: 10 MG, AS NEEDED
     Route: 065
     Dates: start: 20080501
  2. CIALIS [Suspect]
     Dosage: 20 MG, AS NEEDED
     Route: 065
     Dates: start: 20080501
  3. CIALIS [Suspect]
     Dosage: 5 MG, UNKNOWN
     Route: 065
  4. NORVASC [Concomitant]
     Dosage: 10 MG, EACH EVENING
     Route: 065
  5. CLONIDINE [Concomitant]
     Dosage: 0.1 MG, UNKNOWN
     Route: 065
  6. VYTORIN [Concomitant]
     Dosage: 40 MG, UNKNOWN
     Route: 065

REACTIONS (8)
  - ANORGASMIA [None]
  - DRUG INEFFECTIVE [None]
  - FALL [None]
  - HYPERTENSION [None]
  - MUSCLE RUPTURE [None]
  - OFF LABEL USE [None]
  - RASH [None]
  - SURGERY [None]
